FAERS Safety Report 18518258 (Version 2)
Quarter: 2020Q4

REPORT INFORMATION
  Report Type: Report from Study
  Country: None (occurrence: US)
  Receive Date: 20201118
  Receipt Date: 20201120
  Transmission Date: 20210114
  Serious: Yes (Hospitalization, Other)
  Sender: FDA-Public Use
  Company Number: US-ABBVIE-20K-163-3558968-00

PATIENT
  Sex: Female
  Weight: 102.15 kg

DRUGS (1)
  1. HUMIRA [Suspect]
     Active Substance: ADALIMUMAB
     Indication: PSORIASIS
     Dosage: CITRATE FREE
     Route: 058

REACTIONS (8)
  - Chronic obstructive pulmonary disease [Not Recovered/Not Resolved]
  - Contusion [Unknown]
  - Seizure [Unknown]
  - Psoriasis [Unknown]
  - Fall [Unknown]
  - Insomnia [Unknown]
  - Pneumonia [Recovered/Resolved]
  - Back pain [Not Recovered/Not Resolved]
